FAERS Safety Report 10776517 (Version 1)
Quarter: 2015Q1

REPORT INFORMATION
  Report Type: Spontaneous
  Country: US (occurrence: None)
  Receive Date: 20150205
  Receipt Date: 20150205
  Transmission Date: 20150721
  Serious: Yes (Life-Threatening, Hospitalization)
  Sender: FDA-Public Use
  Company Number: None

PATIENT
  Age: 32 Year
  Sex: Female
  Weight: 82.1 kg

DRUGS (4)
  1. LEUCOVORIN [Concomitant]
     Active Substance: LEUCOVORIN
  2. 5-FU [Concomitant]
     Active Substance: FLUOROURACIL
  3. FLUOROURACIL. [Suspect]
     Active Substance: FLUOROURACIL
     Indication: RECTAL CANCER
     Dosage: 764 MG  DAY 1 AND DAY 15 INTRAVENOUS
     Route: 042
     Dates: start: 20141203, end: 20141205
  4. OXALIPLATIN. [Concomitant]
     Active Substance: OXALIPLATIN

REACTIONS (8)
  - Vomiting [None]
  - Chest discomfort [None]
  - Stress cardiomyopathy [None]
  - Prinzmetal angina [None]
  - Pericarditis [None]
  - Eructation [None]
  - Dizziness [None]
  - Nausea [None]

NARRATIVE: CASE EVENT DATE: 20141205
